FAERS Safety Report 14893660 (Version 3)
Quarter: 2018Q2

REPORT INFORMATION
  Report Type: Spontaneous
  Country: MX (occurrence: MX)
  Receive Date: 20180514
  Receipt Date: 20180608
  Transmission Date: 20180711
  Serious: Yes (Hospitalization, Disabling, Other)
  Sender: FDA-Public Use
  Company Number: PHHY2018MX005134

PATIENT
  Age: 55 Year
  Sex: Male
  Weight: 75 kg

DRUGS (1)
  1. GILENYA [Suspect]
     Active Substance: FINGOLIMOD HYDROCHLORIDE
     Indication: RELAPSING-REMITTING MULTIPLE SCLEROSIS
     Dosage: 0.5 MG, QD
     Route: 048
     Dates: start: 2013, end: 201801

REACTIONS (11)
  - Drug ineffective [Unknown]
  - Asthenia [Unknown]
  - Nervous system disorder [Unknown]
  - Lymphopenia [Recovering/Resolving]
  - Gait disturbance [Unknown]
  - Multiple sclerosis relapse [Unknown]
  - Rebound effect [Unknown]
  - Anal sphincter atony [Unknown]
  - Central nervous system lesion [Not Recovered/Not Resolved]
  - Quadriplegia [Unknown]
  - Cognitive disorder [Unknown]

NARRATIVE: CASE EVENT DATE: 201801
